FAERS Safety Report 9341109 (Version 1)
Quarter: 2013Q2

REPORT INFORMATION
  Report Type: Spontaneous
  Country: FI (occurrence: FI)
  Receive Date: 20130610
  Receipt Date: 20130610
  Transmission Date: 20140414
  Serious: Yes (Hospitalization)
  Sender: FDA-Public Use
  Company Number: FI-ELI_LILLY_AND_COMPANY-FI201304002598

PATIENT
  Age: 74 Year
  Sex: Female

DRUGS (10)
  1. FORSTEO [Suspect]
     Indication: OSTEOPOROSIS
     Dosage: 20 UG, QD
     Route: 058
     Dates: start: 20120607
  2. CORTISONE [Concomitant]
     Indication: RHEUMATOID ARTHRITIS
     Dosage: 5 MG, QD
     Route: 065
     Dates: start: 1990
  3. PANADOL [Concomitant]
     Indication: MOVEMENT DISORDER
     Dosage: 1000 MG, QD
     Route: 065
  4. IBUMAX [Concomitant]
     Indication: PAIN
     Dosage: UNK UNK, UNKNOWN
     Route: 065
  5. TREXAN [Concomitant]
     Indication: RHEUMATOID ARTHRITIS
     Dosage: 7.5 MG, WEEKLY (1/W)
     Route: 065
     Dates: start: 2002
  6. ACIDOPHILUS [Concomitant]
     Indication: PROPHYLAXIS
     Dosage: UNK UNK, UNKNOWN
     Route: 065
  7. MICARDIS [Concomitant]
     Indication: HYPERTENSION
     Dosage: 40 MG, UNKNOWN
     Route: 065
  8. CALCICHEW-D3 FORTE [Concomitant]
     Indication: MEDICAL DIET
     Dosage: UNK UNK, UNKNOWN
     Route: 065
  9. BISOPROLOL [Concomitant]
     Indication: CARDIAC FAILURE
     Dosage: 2.5 MG, QD
     Route: 065
     Dates: start: 20120915
  10. FUCIDIN [Concomitant]
     Indication: INFECTION
     Dosage: UNK, UNKNOWN
     Route: 065

REACTIONS (3)
  - Tendon rupture [Not Recovered/Not Resolved]
  - Pain [Not Recovered/Not Resolved]
  - Pelvic pain [Not Recovered/Not Resolved]
